FAERS Safety Report 16021849 (Version 1)
Quarter: 2019Q1

REPORT INFORMATION
  Report Type: Spontaneous
  Country: CN (occurrence: CN)
  Receive Date: 20190301
  Receipt Date: 20190301
  Transmission Date: 20190418
  Serious: Yes (Other)
  Sender: FDA-Public Use
  Company Number: CN-ROCHE-2268129

PATIENT
  Age: 6 Month
  Sex: Female
  Weight: 5.8 kg

DRUGS (8)
  1. CELLCEPT [Suspect]
     Active Substance: MYCOPHENOLATE MOFETIL\MYCOPHENOLATE MOFETIL HYDROCHLORIDE
     Indication: IMMUNOSUPPRESSION
     Route: 065
     Dates: start: 2017
  2. TEICOPLANIN [Concomitant]
     Active Substance: TEICOPLANIN
     Route: 065
     Dates: start: 2017
  3. CYCLOSPORINE. [Concomitant]
     Active Substance: CYCLOSPORINE
     Route: 065
     Dates: start: 2017
  4. FUROSEMIDE. [Concomitant]
     Active Substance: FUROSEMIDE
     Route: 065
     Dates: start: 2017
  5. CYCLOPHOSPHAMIDE. [Concomitant]
     Active Substance: CYCLOPHOSPHAMIDE
     Route: 065
     Dates: start: 2017
  6. PREDNISONE. [Concomitant]
     Active Substance: PREDNISONE
     Dosage: DAILY
     Route: 065
     Dates: start: 2017
  7. HEPARIN [Concomitant]
     Active Substance: HEPARIN SODIUM
     Route: 065
     Dates: start: 2017
  8. MERCAPTOPURINE. [Concomitant]
     Active Substance: MERCAPTOPURINE
     Route: 065
     Dates: start: 2017

REACTIONS (4)
  - Cardiac failure [Unknown]
  - Enterococcal infection [Unknown]
  - Transplant rejection [Unknown]
  - Klebsiella infection [Unknown]

NARRATIVE: CASE EVENT DATE: 2017
